FAERS Safety Report 14690451 (Version 5)
Quarter: 2018Q2

REPORT INFORMATION
  Report Type: Spontaneous
  Country: US (occurrence: US)
  Receive Date: 20180328
  Receipt Date: 20180510
  Transmission Date: 20180711
  Serious: No
  Sender: FDA-Public Use
  Company Number: US-009507513-1803USA009440

PATIENT
  Sex: Female
  Weight: 69.39 kg

DRUGS (5)
  1. GANIRELIX ACETATE INJECTION [Suspect]
     Active Substance: GANIRELIX ACETATE
     Indication: IN VITRO FERTILISATION
     Dosage: UNK
  2. DESOGEN [Concomitant]
     Active Substance: DESOGESTREL\ETHINYL ESTRADIOL
     Indication: IN VITRO FERTILISATION
     Dosage: UNK
     Dates: start: 20180119, end: 20180220
  3. MENOPUR [Concomitant]
     Active Substance: FOLLITROPIN\LUTEINIZING HORMONE
     Indication: IN VITRO FERTILISATION
     Dosage: 1 DF, QD (PATIENT CYCLE 3)
     Dates: start: 20180225, end: 20180303
  4. PUREGON PEN [Suspect]
     Active Substance: FOLLITROPIN
     Indication: IN VITRO FERTILISATION
     Dosage: UNK (PATIENT CYCLE 3)
     Dates: start: 20180225, end: 20180303
  5. FOLLISTIM [Suspect]
     Active Substance: FOLLITROPIN
     Indication: IN VITRO FERTILISATION
     Dosage: 150 IU, QD (PATIENT CYCLE 3)
     Dates: start: 20180225, end: 20180303

REACTIONS (4)
  - Device malfunction [Unknown]
  - Maternal exposure before pregnancy [Unknown]
  - Drug dose omission [Unknown]
  - Oestradiol decreased [Unknown]

NARRATIVE: CASE EVENT DATE: 20180303
